FAERS Safety Report 12364892 (Version 1)
Quarter: 2016Q2

REPORT INFORMATION
  Report Type: Spontaneous
  Country: US (occurrence: None)
  Receive Date: 20160512
  Receipt Date: 20160512
  Transmission Date: 20160815
  Serious: Yes (Hospitalization)
  Sender: FDA-Public Use
  Company Number: None

PATIENT
  Age: 75 Year
  Sex: Female
  Weight: 61.24 kg

DRUGS (13)
  1. FISH OIL [Concomitant]
     Active Substance: FISH OIL
  2. GLUCOSAMINE/CHONDROITIN/MSM [Concomitant]
  3. PROPOFOL. [Suspect]
     Active Substance: PROPOFOL
     Indication: ANAESTHESIA
     Dosage: 140 MG 4 DIVIDED DOSES INTO A VEIN
     Route: 042
  4. PROPOFOL. [Suspect]
     Active Substance: PROPOFOL
     Indication: COLONOSCOPY
     Dosage: 140 MG 4 DIVIDED DOSES INTO A VEIN
     Route: 042
  5. ASPIRIN. [Concomitant]
     Active Substance: ASPIRIN
  6. LEXAPRO [Concomitant]
     Active Substance: ESCITALOPRAM OXALATE
  7. LISINOPRIL. [Concomitant]
     Active Substance: LISINOPRIL
  8. ZYRTEC [Concomitant]
     Active Substance: CETIRIZINE HYDROCHLORIDE
  9. CALCIUM+VIT D /00944201/ [Concomitant]
     Active Substance: CALCIUM CARBONATE\CHOLECALCIFEROL
  10. TURMERIC [Concomitant]
     Active Substance: TURMERIC
  11. ZETIA [Concomitant]
     Active Substance: EZETIMIBE
  12. CRESTOR [Concomitant]
     Active Substance: ROSUVASTATIN CALCIUM
  13. MULTIVITAMINS [Concomitant]
     Active Substance: VITAMINS

REACTIONS (2)
  - Angioedema [None]
  - Productive cough [None]

NARRATIVE: CASE EVENT DATE: 20160506
